FAERS Safety Report 5128010-X (Version None)
Quarter: 2006Q4

REPORT INFORMATION
  Report Type: 
  Country: None (occurrence: None)
  Receive Date: 20061016
  Receipt Date: 20061009
  Transmission Date: 20070319
  Serious: Yes (Hospitalization)
  Sender: FDA-Public Use
  Company Number: GB-SANOFI-SYNTHELABO-F01200602095

PATIENT
  Sex: Female
  Weight: 53 kg

DRUGS (7)
  1. WARFARIN SODIUM [Concomitant]
     Dosage: UNK
     Route: 048
     Dates: start: 20060101
  2. FLUOROURACIL [Suspect]
     Dosage: DOSE UNKNOWN
     Route: 041
     Dates: start: 20060817, end: 20060818
  3. FOLINIC ACID [Suspect]
     Dosage: DOSE NOT SPECIFIED
     Route: 041
     Dates: start: 20060830, end: 20060830
  4. RANITIDINE [Concomitant]
     Indication: PREMEDICATION
     Route: 048
     Dates: start: 20060830, end: 20060830
  5. PIRITON [Concomitant]
     Indication: PREMEDICATION
     Dates: start: 20060830, end: 20060830
  6. HYDROCORTISONE ACETATE [Concomitant]
     Indication: PREMEDICATION
     Route: 042
     Dates: start: 20060830, end: 20060830
  7. OXALIPLATIN [Suspect]
     Indication: COLORECTAL CANCER METASTATIC
     Route: 041
     Dates: start: 20060830, end: 20060830

REACTIONS (3)
  - CHOLINERGIC SYNDROME [None]
  - HEART RATE DECREASED [None]
  - HYPOTENSION [None]
